FAERS Safety Report 9494655 (Version 3)
Quarter: 2013Q3

REPORT INFORMATION
  Report Type: Spontaneous
  Country: FR (occurrence: FR)
  Receive Date: 20130903
  Receipt Date: 20130923
  Transmission Date: 20140515
  Serious: Yes (Life-Threatening)
  Sender: FDA-Public Use
  Company Number: FR-PFIZER INC-2013239677

PATIENT
  Age: 56 Year
  Sex: Male

DRUGS (22)
  1. VFEND [Suspect]
     Indication: PROPHYLAXIS
     Dosage: 300 MG, 2X/DAY
     Route: 042
     Dates: start: 20130718, end: 20130724
  2. VFEND [Suspect]
     Dosage: UNK
     Route: 042
     Dates: start: 20130725, end: 20130727
  3. ALPRAZOLAM [Suspect]
     Dosage: 0.25 UNK, 3X/DAY
     Route: 048
  4. ALPRAZOLAM [Suspect]
     Dosage: 1 MG IN THE MORNING, 0.5 MG AT NOON, 1 MG IN THE EVENING
     Dates: start: 20130712, end: 20130726
  5. VALACICLOVIR [Suspect]
     Dosage: 500 MG, 2X/DAY
     Route: 048
     Dates: start: 20130709, end: 20130726
  6. PIPERACILLIN/TAZOBACTAM PANPHARMA [Suspect]
     Indication: PYREXIA
     Dosage: UNK
     Route: 042
     Dates: start: 20130712, end: 20130731
  7. PLITICAN [Suspect]
     Indication: NAUSEA
     Dosage: 3 DF, DAILY
     Route: 042
     Dates: start: 20130712, end: 20130726
  8. ZOPICLONE [Suspect]
     Dosage: 3.75 MG, 1X/DAY AT BEDTIME
     Route: 048
     Dates: start: 20130709, end: 20130726
  9. OXYNORM [Suspect]
     Dosage: UNK
     Dates: start: 20130712, end: 20130727
  10. ENALAPRIL [Concomitant]
     Dosage: UNK
  11. LERCAN [Concomitant]
     Dosage: UNK
  12. ARACYTINE [Concomitant]
     Indication: ACUTE MYELOID LEUKAEMIA
     Dosage: 200 MG/M2, UNK
     Route: 042
     Dates: start: 20130711, end: 20130717
  13. DOXORUBICIN [Concomitant]
     Indication: ACUTE MYELOID LEUKAEMIA
     Dosage: UNK
     Route: 042
     Dates: start: 20130711
  14. METHOTREXATE [Concomitant]
     Indication: ACUTE MYELOID LEUKAEMIA
     Dosage: UNK
     Route: 037
     Dates: start: 20130711
  15. METHYLPREDNISOLONE [Concomitant]
     Indication: ACUTE MYELOID LEUKAEMIA
     Dosage: UNK
     Route: 037
     Dates: start: 20130711
  16. CYTARABINE [Concomitant]
     Indication: ACUTE MYELOID LEUKAEMIA
     Dosage: 200 MG/M2, UNK
     Route: 037
     Dates: start: 20130711, end: 20130717
  17. VANCOMYCIN [Concomitant]
     Indication: PYREXIA
     Dosage: UNK
     Dates: start: 20130714, end: 20130731
  18. ALLOPURINOL [Concomitant]
     Dosage: 1 DF, DAILY
  19. ZOLPIDEM [Concomitant]
     Dosage: 1 DF, 1X/DAY IN THE EVENING
     Dates: end: 20130709
  20. PARACETAMOL [Concomitant]
     Dosage: UNK
  21. HYDREA [Concomitant]
     Dosage: UNK
     Dates: start: 20130709, end: 20130711
  22. DAUNORUBICIN [Concomitant]
     Dosage: 60 MG/M2, UNK
     Dates: start: 20130711, end: 20130713

REACTIONS (1)
  - Neurological symptom [Recovering/Resolving]
